FAERS Safety Report 18390126 (Version 2)
Quarter: 2020Q4

REPORT INFORMATION
  Report Type: Spontaneous
  Country: DE (occurrence: DE)
  Receive Date: 20201015
  Receipt Date: 20201016
  Transmission Date: 20210114
  Serious: Yes (Life-Threatening, Hospitalization)
  Sender: FDA-Public Use
  Company Number: NVSC2020DE276219

PATIENT
  Age: 71 Year
  Sex: Female

DRUGS (2)
  1. PROVAS COMP [Suspect]
     Active Substance: HYDROCHLOROTHIAZIDE\VALSARTAN
     Indication: PRODUCT USED FOR UNKNOWN INDICATION
     Dosage: UNK
     Route: 065
  2. CIPROFLOXACIN. [Suspect]
     Active Substance: CIPROFLOXACIN
     Indication: CYSTITIS NONINFECTIVE
     Dosage: 1 DF, ONCE/SINGLE
     Route: 065

REACTIONS (6)
  - Muscle spasms [Unknown]
  - Neurogenic bladder [Unknown]
  - Confusional state [Unknown]
  - Cystitis [Unknown]
  - Hyponatraemia [Unknown]
  - Circulatory collapse [Unknown]
